FAERS Safety Report 9222010 (Version 1)
Quarter: 2013Q2

REPORT INFORMATION
  Report Type: Spontaneous
  Country: US (occurrence: None)
  Receive Date: 20130410
  Receipt Date: 20130410
  Transmission Date: 20140414
  Serious: Yes (Hospitalization)
  Sender: FDA-Public Use
  Company Number: None

PATIENT
  Age: 91 Year
  Sex: Female
  Weight: 70 kg

DRUGS (17)
  1. WARFARIN [Suspect]
     Indication: ATRIAL FIBRILLATION
     Dosage: 2MG  MWTHSS  PO?CHRONIC
     Route: 048
  2. APAP [Concomitant]
  3. ATENOLOL [Concomitant]
  4. OSCAL [Concomitant]
  5. FERROUS GLUCONATE [Concomitant]
  6. FEXOFENADINE [Concomitant]
  7. GABAPENTIN [Concomitant]
  8. DIOVAN HCT [Concomitant]
  9. LETROZOLE [Concomitant]
  10. LEVOTHYROXINE [Concomitant]
  11. LOPERAMIDE [Concomitant]
  12. MAG OX [Concomitant]
  13. MVI [Concomitant]
  14. PROBIOTIC [Concomitant]
  15. PROSIGHT [Concomitant]
  16. KCL [Concomitant]
  17. SERTRALINE [Concomitant]

REACTIONS (4)
  - Fall [None]
  - Subarachnoid haemorrhage [None]
  - Subdural haematoma [None]
  - International normalised ratio increased [None]
